FAERS Safety Report 12543337 (Version 1)
Quarter: 2016Q3

REPORT INFORMATION
  Report Type: Spontaneous
  Country: US (occurrence: US)
  Receive Date: 20160711
  Receipt Date: 20160711
  Transmission Date: 20161109
  Serious: Yes (Other)
  Sender: FDA-Public Use
  Company Number: US-TEVA-675165USA

PATIENT
  Age: 34 Year
  Sex: Male

DRUGS (4)
  1. COPAXONE [Suspect]
     Active Substance: GLATIRAMER ACETATE
     Indication: MULTIPLE SCLEROSIS
     Dosage: 20 MILLIGRAM DAILY; 20MG PRE FILLED SYRINGE
     Route: 058
     Dates: start: 20110325
  2. OXYCODO/APAP 5-325MG [Concomitant]
  3. LEVETIRACETA 250MG [Concomitant]
  4. DEPAKOTE 500MG [Concomitant]

REACTIONS (1)
  - Nuclear magnetic resonance imaging abnormal [Unknown]

NARRATIVE: CASE EVENT DATE: 201606
